FAERS Safety Report 7331658-5 (Version None)
Quarter: 2011Q1

REPORT INFORMATION
  Report Type: 
  Country: None (occurrence: None)
  Receive Date: 20110228
  Receipt Date: 20110228
  Transmission Date: 20110831
  Serious: Yes (Hospitalization, Other)
  Sender: FDA-Public Use
  Company Number: None

PATIENT
  Age: 38 Year
  Sex: Female
  Weight: 59.8748 kg

DRUGS (1)
  1. BACLOFEN [Suspect]
     Indication: MUSCLE SPASMS
     Dosage: TAKE ONE TABLET BY MOUTH TWICE PO; TAKE THREE TIMES PER DAY 7 DAY PO
     Route: 048
     Dates: start: 20110204, end: 20110225

REACTIONS (5)
  - PRODUCT QUALITY ISSUE [None]
  - PAIN [None]
  - PYREXIA [None]
  - ANXIETY [None]
  - ABDOMINAL PAIN UPPER [None]
